FAERS Safety Report 23501098 (Version 1)
Quarter: 2024Q1

REPORT INFORMATION
  Report Type: Report from Study
  Country: US (occurrence: US)
  Receive Date: 20240208
  Receipt Date: 20240208
  Transmission Date: 20240410
  Serious: Yes (Other)
  Sender: FDA-Public Use
  Company Number: US-JNJFOC-20240149768

PATIENT
  Age: 76 Year
  Sex: Male
  Weight: 55.842 kg

DRUGS (1)
  1. ERLEADA [Suspect]
     Active Substance: APALUTAMIDE
     Indication: Prostate cancer
     Route: 048
     Dates: start: 20240106

REACTIONS (8)
  - Heart rate irregular [Recovering/Resolving]
  - Peripheral swelling [Recovering/Resolving]
  - Pain in extremity [Recovering/Resolving]
  - Feeling hot [Recovering/Resolving]
  - Weight increased [Recovering/Resolving]
  - Oxygen saturation decreased [Recovering/Resolving]
  - Arthralgia [Not Recovered/Not Resolved]
  - Pruritus [Not Recovered/Not Resolved]

NARRATIVE: CASE EVENT DATE: 20240120
